FAERS Safety Report 4320579-8 (Version None)
Quarter: 2004Q1

REPORT INFORMATION
  Report Type: 
  Country: None (occurrence: None)
  Receive Date: 20040315
  Receipt Date: 20030127
  Transmission Date: 20041129
  Serious: Yes (Hospitalization)
  Sender: FDA-Public Use
  Company Number: USA030127072

PATIENT
  Age: 66 Year
  Sex: Male
  Weight: 81 kg

DRUGS (2)
  1. GEMZAR [Suspect]
     Indication: NON-SMALL CELL LUNG CANCER
     Dosage: 1900 MG/OTHER
     Route: 050
     Dates: start: 20021202
  2. XELODA [Concomitant]

REACTIONS (4)
  - BOWEL SOUNDS ABNORMAL [None]
  - DIARRHOEA [None]
  - DRY SKIN [None]
  - WEIGHT DECREASED [None]
